FAERS Safety Report 4664141-6 (Version None)
Quarter: 2005Q2

REPORT INFORMATION
  Report Type: 
  Country: None (occurrence: None)
  Receive Date: 20050516
  Receipt Date: 20050502
  Transmission Date: 20051028
  Serious: Yes (Death)
  Sender: FDA-Public Use
  Company Number: DSA_26398_2005

PATIENT
  Age: 64 Year
  Sex: Male

DRUGS (3)
  1. VASOTEC [Suspect]
     Indication: HYPERTENSION
     Dosage: DF PO
     Route: 048
     Dates: start: 19910101, end: 20010501
  2. PRINZIDE [Concomitant]
  3. ZESTRIL [Concomitant]

REACTIONS (7)
  - ANAPHYLACTOID REACTION [None]
  - ANGIONEUROTIC OEDEMA [None]
  - CERUMEN IMPACTION [None]
  - COUGH [None]
  - DEAFNESS [None]
  - GENERAL PHYSICAL HEALTH DETERIORATION [None]
  - RESPIRATORY DISORDER [None]
